FAERS Safety Report 24271024 (Version 1)
Quarter: 2024Q3

REPORT INFORMATION
  Report Type: Spontaneous
  Country: GB (occurrence: GB)
  Receive Date: 20240831
  Receipt Date: 20240831
  Transmission Date: 20241017
  Serious: Yes (Other)
  Sender: ACCORD
  Company Number: None

PATIENT
  Age: 82 Year
  Sex: Female

DRUGS (4)
  1. AMLODIPINE [Suspect]
     Active Substance: AMLODIPINE BESYLATE
     Indication: Product used for unknown indication
  2. SOTALOL [Concomitant]
     Active Substance: SOTALOL\SOTALOL HYDROCHLORIDE
  3. APIXABAN [Concomitant]
     Active Substance: APIXABAN
  4. IRBESARTAN [Concomitant]
     Active Substance: IRBESARTAN

REACTIONS (4)
  - Medication error [Unknown]
  - Dizziness postural [Not Recovered/Not Resolved]
  - Cyanosis [Unknown]
  - Dizziness [Recovering/Resolving]
